FAERS Safety Report 10362828 (Version 1)
Quarter: 2014Q3

REPORT INFORMATION
  Report Type: Spontaneous
  Country: GB (occurrence: GB)
  Receive Date: 20140805
  Receipt Date: 20140805
  Transmission Date: 20150326
  Serious: Yes (Disabling)
  Sender: FDA-Public Use
  Company Number: GB-WATSON-2014-16593

PATIENT
  Age: 74 Year
  Sex: Female

DRUGS (1)
  1. ALLOPURINOL (UNKNOWN) [Suspect]
     Active Substance: ALLOPURINOL
     Indication: PRODUCT USED FOR UNKNOWN INDICATION
     Dosage: UNK
     Route: 065

REACTIONS (6)
  - Mouth swelling [Not Recovered/Not Resolved]
  - Rash generalised [Not Recovered/Not Resolved]
  - Oral pain [Not Recovered/Not Resolved]
  - Lip swelling [Not Recovered/Not Resolved]
  - Lip pain [Not Recovered/Not Resolved]
  - Dysphagia [Unknown]

NARRATIVE: CASE EVENT DATE: 20140626
